FAERS Safety Report 5422045-5 (Version None)
Quarter: 2007Q3

REPORT INFORMATION
  Report Type: 
  Country: None (occurrence: None)
  Receive Date: 20070820
  Receipt Date: 20070807
  Transmission Date: 20080115
  Serious: Yes (Hospitalization)
  Sender: FDA-Public Use
  Company Number: CERZ-11840

PATIENT
  Age: 51 Year
  Sex: Female
  Weight: 57.1 kg

DRUGS (2)
  1. CEREZYME [Suspect]
     Indication: GAUCHER'S DISEASE
     Dosage: 45 U/KG Q2WKS IV
     Route: 042
     Dates: start: 19910812
  2. PREDNISONE [Concomitant]

REACTIONS (3)
  - AUTOIMMUNE HEPATITIS [None]
  - LIVER TRANSPLANT [None]
  - TYPE 2 DIABETES MELLITUS [None]
